FAERS Safety Report 4676525-0 (Version None)
Quarter: 2005Q2

REPORT INFORMATION
  Report Type: 
  Country: None (occurrence: None)
  Receive Date: 20050525
  Receipt Date: 20050513
  Transmission Date: 20051028
  Serious: Yes (Hospitalization)
  Sender: FDA-Public Use
  Company Number: 2005065422

PATIENT
  Age: 37 Year
  Sex: Female

DRUGS (1)
  1. NEURONTIN [Suspect]
     Indication: BACK PAIN
     Dosage: 300 MG (300 MG, 1 IN 1 D); ORAL
     Route: 048
     Dates: start: 20050301, end: 20050301

REACTIONS (5)
  - CHEST PAIN [None]
  - EYELID OEDEMA [None]
  - HOT FLUSH [None]
  - OCULAR HYPERAEMIA [None]
  - PYREXIA [None]
